FAERS Safety Report 10785274 (Version 2)
Quarter: 2015Q1

REPORT INFORMATION
  Report Type: Spontaneous
  Country: US (occurrence: US)
  Receive Date: 20150211
  Receipt Date: 20150218
  Transmission Date: 20150721
  Serious: Yes (Other)
  Sender: FDA-Public Use
  Company Number: US-BAYER-2015-020247

PATIENT
  Sex: Female

DRUGS (1)
  1. SKYLA [Suspect]
     Active Substance: LEVONORGESTREL
     Dosage: 12 MCG/24HR, CONT
     Route: 015
     Dates: start: 201501

REACTIONS (7)
  - Dyspnoea [None]
  - Post procedural haemorrhage [Not Recovered/Not Resolved]
  - Procedural pain [Not Recovered/Not Resolved]
  - Neurogenic shock [None]
  - Complication of device insertion [None]
  - Vomiting [None]
  - Procedural pain [None]

NARRATIVE: CASE EVENT DATE: 201501
